FAERS Safety Report 5971181-3 (Version None)
Quarter: 2008Q4

REPORT INFORMATION
  Report Type: 
  Country: None (occurrence: None)
  Receive Date: 20081128
  Receipt Date: 20080714
  Transmission Date: 20090506
  Serious: Yes (Disabling)
  Sender: FDA-Public Use
  Company Number: US-JNJFOC-20080703711

PATIENT
  Sex: Male
  Weight: 87.09 kg

DRUGS (18)
  1. LEVAQUIN [Suspect]
     Indication: LUNG INFECTION PSEUDOMONAL
     Route: 048
  2. AVELOX [Suspect]
     Route: 065
  3. AVELOX [Suspect]
     Indication: DRUG USE FOR UNKNOWN INDICATION
     Route: 065
  4. CIPROFLOXACIN [Suspect]
     Indication: DRUG USE FOR UNKNOWN INDICATION
     Route: 065
  5. ADVAIR HFA [Concomitant]
     Dosage: 500/50 ONE PUFF 2 TIMES A DAY
  6. PROTONICS [Concomitant]
     Indication: GASTROOESOPHAGEAL REFLUX DISEASE
  7. ALBUTEROL [Concomitant]
     Dosage: 2 PUFFS EVERY 4TH HOUR AS NEDDED (2-3TIMES/WEEK)
  8. METHYLPREDNISOLONE 16MG TAB [Concomitant]
     Indication: PNEUMONIA
     Dosage: TAPER (24 MG BASELINE, 4 MG EVERY MORNING)
  9. TOBRAMYCIN [Concomitant]
     Route: 055
  10. FLOVENT [Concomitant]
     Dosage: 220 TWO PUFFS 2 TIMES A DAY
     Route: 055
  11. MONTELUKAST SODIUM [Concomitant]
     Dosage: EVERY EVENING
     Route: 055
  12. FLUTICASONE PROPIONATE [Concomitant]
     Dosage: 2 SPRAYS TO EACH NOSTRIL ONCE A DAY
     Route: 055
  13. PANTOPRAZOLE SODIUM [Concomitant]
     Route: 065
  14. ALENDRONATE SODIUM [Concomitant]
     Route: 065
  15. ASPIRIN [Concomitant]
     Route: 065
  16. M.V.I. [Concomitant]
     Route: 065
  17. ASCORBIC ACID [Concomitant]
     Route: 065
  18. CALCIUM + VITAMIN D [Concomitant]
     Route: 065

REACTIONS (4)
  - ABASIA [None]
  - MUSCLE SPASMS [None]
  - PAIN IN EXTREMITY [None]
  - TENDON RUPTURE [None]
